FAERS Safety Report 9183273 (Version 3)
Quarter: 2013Q2

REPORT INFORMATION
  Report Type: Report from Study
  Country: NL (occurrence: NL)
  Receive Date: 20130322
  Receipt Date: 20130612
  Transmission Date: 20140414
  Serious: Yes (Hospitalization)
  Sender: FDA-Public Use
  Company Number: NL-ASTRAZENECA-2013SE17061

PATIENT
  Age: 24626 Day
  Sex: Female
  Weight: 88 kg

DRUGS (7)
  1. ARIMIDEX [Suspect]
     Indication: BREAST CANCER FEMALE
     Route: 048
     Dates: start: 20080521, end: 20110515
  2. SIMVASTATINE [Concomitant]
     Route: 048
  3. NEXIUM [Concomitant]
     Route: 048
  4. SPIRIVA [Concomitant]
     Route: 055
  5. ASCAL [Concomitant]
     Route: 048
  6. OXIS [Concomitant]
     Route: 055
  7. LIPITOR [Concomitant]
     Route: 048

REACTIONS (1)
  - Osteoarthritis [Recovered/Resolved]
